FAERS Safety Report 9188356 (Version 1)
Quarter: 2013Q1

REPORT INFORMATION
  Report Type: Spontaneous
  Country: ES (occurrence: ES)
  Receive Date: 20130325
  Receipt Date: 20130325
  Transmission Date: 20140127
  Serious: Yes (Hospitalization)
  Sender: FDA-Public Use
  Company Number: ES-ELI_LILLY_AND_COMPANY-ES201002001060

PATIENT
  Age: 10 None
  Sex: Male

DRUGS (4)
  1. STRATTERA [Suspect]
     Indication: ATTENTION DEFICIT/HYPERACTIVITY DISORDER
     Dosage: 40 MG, DAILY (1/D)
     Route: 048
     Dates: start: 2008
  2. STRATTERA [Suspect]
     Dosage: 60 MG, UNK
     Route: 048
     Dates: start: 201001
  3. DEPAKINE [Concomitant]
     Indication: ATTENTION DEFICIT/HYPERACTIVITY DISORDER
     Dosage: 2000 MG, DAILY (1/D)
     Route: 065
  4. DEPAKINE [Concomitant]
     Dosage: 2000 MG, DAILY (1/D)
     Route: 065
     Dates: start: 20100129

REACTIONS (3)
  - Epilepsy [Recovered/Resolved]
  - Agitation [Unknown]
  - Decreased appetite [Unknown]
